FAERS Safety Report 7301067-3 (Version None)
Quarter: 2011Q1

REPORT INFORMATION
  Report Type: 
  Country: None (occurrence: None)
  Receive Date: 20110218
  Receipt Date: 20110209
  Transmission Date: 20110831
  Serious: Yes (Death)
  Sender: FDA-Public Use
  Company Number: US-AMGEN-USASP2011007757

PATIENT
  Age: 76 Year
  Sex: Female

DRUGS (1)
  1. SENSIPAR [Suspect]
     Indication: HYPERPARATHYROIDISM SECONDARY

REACTIONS (1)
  - DEATH [None]
